FAERS Safety Report 15689321 (Version 1)
Quarter: 2018Q4

REPORT INFORMATION
  Report Type: Spontaneous
  Country: CA (occurrence: CA)
  Receive Date: 20181205
  Receipt Date: 20181205
  Transmission Date: 20190205
  Serious: Yes (Other)
  Sender: FDA-Public Use
  Company Number: CA-TEVA-2018-CA-982193

PATIENT
  Age: 56 Year
  Sex: Male

DRUGS (1)
  1. MORPHINE SULFATE. [Suspect]
     Active Substance: MORPHINE SULFATE
     Indication: COLITIS ULCERATIVE
     Route: 042

REACTIONS (9)
  - Drug hypersensitivity [Unknown]
  - Nasopharyngitis [Unknown]
  - Gout [Unknown]
  - Diarrhoea [Unknown]
  - Haematochezia [Unknown]
  - Drug ineffective [Unknown]
  - Influenza [Unknown]
  - Pyrexia [Unknown]
  - Sinusitis [Unknown]
